FAERS Safety Report 7717108-5 (Version None)
Quarter: 2011Q3

REPORT INFORMATION
  Report Type: 
  Country: None (occurrence: None)
  Receive Date: 20110830
  Receipt Date: 20110824
  Transmission Date: 20111222
  Serious: Yes (Hospitalization)
  Sender: FDA-Public Use
  Company Number: IE-AMGEN-IRLSP2011043418

PATIENT
  Age: 90 Year
  Sex: Male

DRUGS (8)
  1. LEVOTHYROXINE SODIUM [Concomitant]
  2. FUROSEMIDE [Concomitant]
  3. NU SEALS [Concomitant]
  4. FOLIC ACID [Concomitant]
  5. LANSOPRAZOLE [Concomitant]
  6. CARDICOR [Concomitant]
  7. ARANESP [Suspect]
     Indication: RENAL FAILURE CHRONIC
     Dosage: 50 MUG, 2 TIMES/WK
     Route: 058
     Dates: start: 20110729
  8. ROSUVA [Concomitant]

REACTIONS (1)
  - RENAL DISORDER [None]
